FAERS Safety Report 21382490 (Version 6)
Quarter: 2023Q2

REPORT INFORMATION
  Report Type: Other
  Country: IT (occurrence: None)
  Receive Date: 20220927
  Receipt Date: 20230518
  Transmission Date: 20230722
  Serious: Yes (Death, Hospitalization, Other)
  Sender: FDA-Public Use
  Company Number: IT-ROCHE-2654795

PATIENT
  Age: 67 Year
  Sex: Female
  Weight: 75 kg

DRUGS (4)
  1. OBINUTUZUMAB [Suspect]
     Active Substance: OBINUTUZUMAB
     Indication: Follicular lymphoma
     Dosage: NUMBER OF CYCLES RECEIVED (AT STUDY ENTRY):6?INDUCTION PHASE: 1000 MILLIGRAM (MG) INTRAVENOUSLY (IV)
     Route: 042
     Dates: start: 20190801
  2. OBINUTUZUMAB [Suspect]
     Active Substance: OBINUTUZUMAB
     Route: 042
     Dates: start: 20190808
  3. LEVOFLOXACIN [Concomitant]
     Active Substance: LEVOFLOXACIN
     Indication: Pyrexia
  4. FLUCONAZOLE [Concomitant]
     Active Substance: FLUCONAZOLE
     Indication: Pyrexia

REACTIONS (8)
  - Adenocarcinoma of colon [Not Recovered/Not Resolved]
  - Inflammatory bowel disease [Not Recovered/Not Resolved]
  - Abscess bacterial [Recovered/Resolved]
  - Cerebral ischaemia [Fatal]
  - Clostridium difficile colitis [Recovered/Resolved]
  - Hypogammaglobulinaemia [Recovered/Resolved]
  - Diarrhoea [Recovered/Resolved]
  - Pyrexia [Recovered/Resolved]

NARRATIVE: CASE EVENT DATE: 20200321
